FAERS Safety Report 9696416 (Version 1)
Quarter: 2013Q4

REPORT INFORMATION
  Report Type: Spontaneous
  Country: JP (occurrence: JP)
  Receive Date: 20131119
  Receipt Date: 20131119
  Transmission Date: 20140711
  Serious: Yes (Other)
  Sender: FDA-Public Use
  Company Number: JP-PFIZER INC-2013323060

PATIENT
  Age: 25 Year
  Sex: Female

DRUGS (1)
  1. ZITHROMAC SR [Suspect]
     Dosage: UNK
     Dates: start: 201301

REACTIONS (1)
  - Enterocolitis haemorrhagic [Unknown]
